FAERS Safety Report 7730782-2 (Version None)
Quarter: 2011Q3

REPORT INFORMATION
  Report Type: 
  Country: None (occurrence: None)
  Receive Date: 20110906
  Receipt Date: 20110829
  Transmission Date: 20111222
  Serious: Yes (Other)
  Sender: FDA-Public Use
  Company Number: IT-ELI_LILLY_AND_COMPANY-IT201106005556

PATIENT
  Sex: Female

DRUGS (2)
  1. CARBOPLATIN [Concomitant]
     Dosage: 400 MG/M2, UNKNOWN
     Route: 042
     Dates: start: 20100219, end: 20100219
  2. ALIMTA [Suspect]
     Indication: LUNG ADENOCARCINOMA METASTATIC
     Dosage: 500 MG/M2, CYCLE
     Route: 042
     Dates: start: 20100219, end: 20100219

REACTIONS (2)
  - HYPERTRANSAMINASAEMIA [None]
  - HEPATITIS [None]
